FAERS Safety Report 4457524-0 (Version None)
Quarter: 2004Q3

REPORT INFORMATION
  Report Type: 
  Country: None (occurrence: None)
  Receive Date: 20040922
  Receipt Date: 20040907
  Transmission Date: 20050211
  Serious: Yes (Hospitalization)
  Sender: FDA-Public Use
  Company Number: US_0409105278

PATIENT
  Age: 1 Day
  Sex: Female
  Weight: 4 kg

DRUGS (5)
  1. ZYPREXA [Suspect]
  2. PROZAC [Concomitant]
  3. BENADRYL [Concomitant]
  4. PRENATAL VITAMINS [Concomitant]
  5. ANAFRANIL [Concomitant]

REACTIONS (2)
  - DRUG EXPOSURE DURING PREGNANCY [None]
  - NEONATAL ASPIRATION [None]
